FAERS Safety Report 5255086-1 (Version None)
Quarter: 2007Q1

REPORT INFORMATION
  Report Type: 
  Country: None (occurrence: None)
  Receive Date: 20070228
  Receipt Date: 20070102
  Transmission Date: 20070707
  Serious: Yes (Hospitalization)
  Sender: FDA-Public Use
  Company Number: 2007US000101

PATIENT
  Age: 61 Year
  Sex: Female

DRUGS (3)
  1. ADENOCARD [Suspect]
     Indication: SUPRAVENTRICULAR TACHYCARDIA
     Dosage: SEE IMAGE
     Route: 040
     Dates: start: 20061106, end: 20061106
  2. ADENOCARD [Suspect]
     Indication: SUPRAVENTRICULAR TACHYCARDIA
     Dosage: SEE IMAGE
     Route: 040
     Dates: start: 20061106, end: 20061106
  3. FOSAMAX [Concomitant]

REACTIONS (3)
  - BLISTER [None]
  - RASH MACULO-PAPULAR [None]
  - RASH PRURITIC [None]
